FAERS Safety Report 7159046-5 (Version None)
Quarter: 2010Q4

REPORT INFORMATION
  Report Type: 
  Country: None (occurrence: None)
  Receive Date: 20101214
  Receipt Date: 20101201
  Transmission Date: 20110411
  Serious: Yes (Death, Hospitalization, Other)
  Sender: FDA-Public Use
  Company Number: US-ELI_LILLY_AND_COMPANY-US201012000539

PATIENT
  Age: 67 Year
  Sex: Male

DRUGS (3)
  1. SYMBYAX [Suspect]
     Indication: DEPRESSION
     Dosage: UNK, DAILY (1/D)
  2. DEXADRIN [Concomitant]
     Dosage: 5 MG, 3/D
  3. VALIUM [Concomitant]
     Dosage: 5 MG, 4/D

REACTIONS (5)
  - COMPLETED SUICIDE [None]
  - GUN SHOT WOUND [None]
  - MULTIPLE FRACTURES [None]
  - OFF LABEL USE [None]
  - ROAD TRAFFIC ACCIDENT [None]
